FAERS Safety Report 7313169-6 (Version None)
Quarter: 2011Q1

REPORT INFORMATION
  Report Type: 
  Country: None (occurrence: None)
  Receive Date: 20110225
  Receipt Date: 20110219
  Transmission Date: 20110831
  Serious: No
  Sender: FDA-Public Use
  Company Number: US-TEVA-268311USA

PATIENT
  Sex: Female
  Weight: 54.48 kg

DRUGS (2)
  1. SPRINTEC [Concomitant]
     Indication: ORAL CONTRACEPTION
     Route: 048
     Dates: start: 20060101
  2. PLAN B ONE-STEP [Suspect]
     Indication: POST COITAL CONTRACEPTION
     Route: 048
     Dates: start: 20101227, end: 20101227

REACTIONS (1)
  - MOOD SWINGS [None]
